FAERS Safety Report 5464852-9 (Version None)
Quarter: 2007Q3

REPORT INFORMATION
  Report Type: 
  Country: None (occurrence: None)
  Receive Date: 20070921
  Receipt Date: 20070911
  Transmission Date: 20080115
  Serious: Yes (Other)
  Sender: FDA-Public Use
  Company Number: AR-PFIZER INC-2007076194

PATIENT
  Sex: Female

DRUGS (1)
  1. VARENICLINE TABLETS [Suspect]

REACTIONS (1)
  - PARANOIA [None]
